FAERS Safety Report 7648010-5 (Version None)
Quarter: 2011Q3

REPORT INFORMATION
  Report Type: 
  Country: None (occurrence: None)
  Receive Date: 20110801
  Receipt Date: 20110721
  Transmission Date: 20111222
  Serious: Yes (Other)
  Sender: FDA-Public Use
  Company Number: US-JNJFOC-20110709633

PATIENT
  Sex: Female

DRUGS (13)
  1. SAPHRIS [Concomitant]
     Indication: PRODUCT USED FOR UNKNOWN INDICATION
     Route: 065
  2. RISPERDAL [Suspect]
     Indication: SCHIZOPHRENIA
     Route: 048
  3. RISPERDAL [Suspect]
     Indication: BIPOLAR DISORDER
     Route: 048
  4. RISPERDAL [Suspect]
     Indication: AGORAPHOBIA
     Route: 048
  5. ASPIRIN [Suspect]
     Indication: HEADACHE
     Route: 065
  6. SEROQUEL [Concomitant]
     Indication: PRODUCT USED FOR UNKNOWN INDICATION
     Route: 065
  7. TRAZODONE HYDROCHLORIDE [Concomitant]
     Indication: PRODUCT USED FOR UNKNOWN INDICATION
     Route: 065
  8. LITHIUM [Concomitant]
     Indication: PRODUCT USED FOR UNKNOWN INDICATION
     Route: 065
  9. DEPAKOTE [Concomitant]
     Indication: PRODUCT USED FOR UNKNOWN INDICATION
     Route: 065
  10. RISPERDAL [Suspect]
     Indication: BIPOLAR I DISORDER
     Route: 048
  11. TEGRETOL [Concomitant]
     Indication: PRODUCT USED FOR UNKNOWN INDICATION
     Route: 065
  12. RISPERDAL [Suspect]
     Indication: OBSESSIVE-COMPULSIVE DISORDER
     Route: 048
  13. AMBIEN [Concomitant]
     Indication: PRODUCT USED FOR UNKNOWN INDICATION
     Route: 065

REACTIONS (7)
  - TARDIVE DYSKINESIA [None]
  - MUSCLE SPASMS [None]
  - FEELING ABNORMAL [None]
  - HYPOAESTHESIA [None]
  - HEADACHE [None]
  - MOVEMENT DISORDER [None]
  - GAIT DISTURBANCE [None]
